FAERS Safety Report 7586383-2 (Version None)
Quarter: 2011Q3

REPORT INFORMATION
  Report Type: 
  Country: None (occurrence: None)
  Receive Date: 20110701
  Receipt Date: 20110623
  Transmission Date: 20111222
  Serious: Yes (Other)
  Sender: FDA-Public Use
  Company Number: A0918048A

PATIENT
  Age: 60 Year
  Sex: Female

DRUGS (1)
  1. VOTRIENT [Suspect]
     Dosage: 800MG PER DAY

REACTIONS (6)
  - STOMATITIS [None]
  - FATIGUE [None]
  - NASAL DRYNESS [None]
  - HAEMORRHAGE [None]
  - WHITE BLOOD CELL COUNT DECREASED [None]
  - NASAL DISCOMFORT [None]
